FAERS Safety Report 6523899-1 (Version None)
Quarter: 2009Q4

REPORT INFORMATION
  Report Type: 
  Country: None (occurrence: None)
  Receive Date: 20091230
  Receipt Date: 20091230
  Transmission Date: 20100525
  Serious: Yes (Hospitalization)
  Sender: FDA-Public Use
  Company Number: None

PATIENT
  Age: 62 Year
  Sex: Male

DRUGS (7)
  1. NAFCILLIN [Suspect]
     Indication: BACTERAEMIA
     Dosage: 2GM IV Q4HOURS
     Route: 042
     Dates: start: 20090821, end: 20090828
  2. ASPIRIN [Concomitant]
  3. DEXAMETHASONE [Concomitant]
  4. METOPROLOL TARTRATE [Concomitant]
  5. RAMIPRIL [Concomitant]
  6. SIMVASTATIN [Concomitant]
  7. EZETIMIBE [Concomitant]

REACTIONS (2)
  - BLOOD CREATININE INCREASED [None]
  - RASH [None]
